FAERS Safety Report 9803018 (Version 1)
Quarter: 2014Q1

REPORT INFORMATION
  Report Type: Spontaneous
  Country: US (occurrence: None)
  Receive Date: 20140106
  Receipt Date: 20140106
  Transmission Date: 20141002
  Serious: Yes (Life-Threatening, Hospitalization)
  Sender: FDA-Public Use
  Company Number: None

PATIENT
  Age: 84 Year
  Sex: Male
  Weight: 78.02 kg

DRUGS (12)
  1. GABAPENTIN [Suspect]
     Indication: BACK PAIN
     Dosage: 3 TAD
     Route: 048
     Dates: start: 20130603, end: 20130603
  2. GABAPENTIN [Suspect]
     Indication: LUMBAR SPINAL STENOSIS
     Dosage: 3 TAD
     Route: 048
     Dates: start: 20130603, end: 20130603
  3. PREDNISONE [Suspect]
     Dosage: INJECTION
  4. CARDIZEM [Concomitant]
  5. LASIX [Concomitant]
  6. POTASSIUM CHLORIDE [Concomitant]
  7. OMEPRAZOLE [Concomitant]
  8. FERROUZION [Concomitant]
  9. XARELTO [Concomitant]
  10. FISH OIL [Concomitant]
  11. VITAMIN C [Concomitant]
  12. DAILY VITAMIN [Concomitant]

REACTIONS (3)
  - Loss of consciousness [None]
  - Blood disorder [None]
  - Infection [None]
